FAERS Safety Report 8521199-1 (Version None)
Quarter: 2012Q3

REPORT INFORMATION
  Report Type: 
  Country: None (occurrence: None)
  Receive Date: 20120719
  Receipt Date: 20120709
  Transmission Date: 20120928
  Serious: Yes (Life-Threatening)
  Sender: FDA-Public Use
  Company Number: JP-ROCHE-1087158

PATIENT
  Sex: Female

DRUGS (1)
  1. AVASTIN [Suspect]
     Indication: LUNG NEOPLASM MALIGNANT
     Route: 041
     Dates: start: 20120329

REACTIONS (3)
  - LOSS OF CONSCIOUSNESS [None]
  - PNEUMONIA [None]
  - OBSTRUCTIVE AIRWAYS DISORDER [None]
